FAERS Safety Report 12944635 (Version 1)
Quarter: 2016Q4

REPORT INFORMATION
  Report Type: Spontaneous
  Country: US (occurrence: US)
  Receive Date: 20161116
  Receipt Date: 20161116
  Transmission Date: 20170207
  Serious: No
  Sender: FDA-Public Use
  Company Number: US-JNJFOC-20161015413

PATIENT
  Sex: Male
  Weight: 65.77 kg

DRUGS (5)
  1. BIOTIN [Concomitant]
     Active Substance: BIOTIN
     Indication: PROPHYLAXIS
     Route: 065
  2. BIOTIN [Concomitant]
     Active Substance: BIOTIN
     Indication: NAIL DISORDER
     Route: 065
  3. MENS ROGAINE EXTRA STRENGTH [Suspect]
     Active Substance: MINOXIDIL
     Route: 061
  4. MENS ROGAINE EXTRA STRENGTH [Suspect]
     Active Substance: MINOXIDIL
     Indication: ALOPECIA
     Dosage: ABOUT A HALF A CAP, 2X DAILY
     Route: 061
  5. BIOTIN [Concomitant]
     Active Substance: BIOTIN
     Indication: HAIR DISORDER
     Route: 065

REACTIONS (1)
  - Alopecia [Not Recovered/Not Resolved]
